FAERS Safety Report 7815218-5 (Version None)
Quarter: 2011Q4

REPORT INFORMATION
  Report Type: 
  Country: None (occurrence: None)
  Receive Date: 20111014
  Receipt Date: 20111004
  Transmission Date: 20120403
  Serious: Yes (Death, Life-Threatening, Other)
  Sender: FDA-Public Use
  Company Number: US-JNJFOC-20060904587

PATIENT
  Sex: Male

DRUGS (8)
  1. HEPARIN [Concomitant]
     Indication: VENA CAVA THROMBOSIS
  2. IMURAN [Suspect]
     Indication: COLITIS
     Dates: start: 20021115
  3. ASACOL [Concomitant]
     Indication: COLITIS
  4. STEROIDS [Concomitant]
  5. IMURAN [Suspect]
     Dates: start: 20011201, end: 20021114
  6. LOVENOX [Suspect]
     Indication: PRODUCT USED FOR UNKNOWN INDICATION
  7. REMICADE [Suspect]
     Indication: COLITIS ULCERATIVE
     Dosage: SINGLE INFUSION
     Route: 042
     Dates: start: 20011222, end: 20011222
  8. HEPARIN [Concomitant]
     Indication: ANTIPHOSPHOLIPID SYNDROME

REACTIONS (8)
  - NUCLEAR MAGNETIC RESONANCE IMAGING BRAIN ABNORMAL [None]
  - GRAFT VERSUS HOST DISEASE [None]
  - ANTIPHOSPHOLIPID SYNDROME [None]
  - PULMONARY EMBOLISM [None]
  - HYPERTENSION [None]
  - HEPATOSPLENIC T-CELL LYMPHOMA [None]
  - HYDROCEPHALUS [None]
  - AQUEDUCTAL STENOSIS [None]
